FAERS Safety Report 8113594-X (Version None)
Quarter: 2012Q1

REPORT INFORMATION
  Report Type: 
  Country: None (occurrence: None)
  Receive Date: 20120203
  Receipt Date: 20120126
  Transmission Date: 20120608
  Serious: Yes (Death, Hospitalization)
  Sender: FDA-Public Use
  Company Number: JP-PFIZER INC-2012025777

PATIENT
  Age: 67 Year
  Sex: Male
  Weight: 60 kg

DRUGS (7)
  1. CELECOXIB [Suspect]
     Dosage: 200 MG, 2X/DAY
     Route: 048
     Dates: start: 20100123, end: 20101101
  2. RHEUMATREX [Suspect]
     Dosage: 6 MG, 1X/DAY
     Route: 048
     Dates: start: 20100223, end: 20100706
  3. AZULFIDINE [Concomitant]
     Dosage: UNK
     Route: 048
     Dates: start: 20100123, end: 20100123
  4. RHEUMATREX [Suspect]
     Dosage: 8 MG, 1X/DAY
     Route: 048
     Dates: start: 20100706, end: 20101101
  5. PROGRAF [Suspect]
     Indication: RHEUMATOID ARTHRITIS
     Dosage: 1 MG, 1X/DAY
     Route: 048
     Dates: start: 20100323
  6. RHEUMATREX [Suspect]
     Indication: RHEUMATOID ARTHRITIS
     Dosage: 2 MG, 2X/DAY
     Route: 048
     Dates: start: 20100123, end: 20100223
  7. LANSOPRAZOLE [Suspect]
     Dosage: 15 MG, 1X/DAY
     Route: 048
     Dates: start: 20100830, end: 20101101

REACTIONS (2)
  - PNEUMONIA ASPIRATION [None]
  - BLADDER CANCER [None]
